FAERS Safety Report 13332182 (Version 1)
Quarter: 2017Q1

REPORT INFORMATION
  Report Type: Spontaneous
  Country: US (occurrence: US)
  Receive Date: 20170314
  Receipt Date: 20170314
  Transmission Date: 20170428
  Serious: No
  Sender: FDA-Public Use
  Company Number: US-JNJFOC-20170223544

PATIENT
  Age: 85 Year
  Sex: Female
  Weight: 56.7 kg

DRUGS (1)
  1. TYLENOL REGULAR STRENGTH [Suspect]
     Active Substance: ACETAMINOPHEN
     Indication: ARTHRALGIA
     Dosage: DAILY, SHE STARTS OUT TAKING TWO, THEN WILL TAKE ONE??AND THEN LATER ON TAKE TWO MORE.
     Route: 048

REACTIONS (1)
  - Inappropriate schedule of drug administration [Unknown]
